FAERS Safety Report 19275186 (Version 1)
Quarter: 2021Q2

REPORT INFORMATION
  Report Type: Spontaneous
  Country: US (occurrence: US)
  Receive Date: 20210519
  Receipt Date: 20210519
  Transmission Date: 20210717
  Serious: No
  Sender: FDA-Public Use
  Company Number: US-TEVA-2021-US-1910439

PATIENT
  Sex: Female

DRUGS (3)
  1. AJOVY [Suspect]
     Active Substance: FREMANEZUMAB-VFRM
     Route: 065
     Dates: start: 20210505
  2. AJOVY [Suspect]
     Active Substance: FREMANEZUMAB-VFRM
  3. ELETRIPTAN. [Concomitant]
     Active Substance: ELETRIPTAN

REACTIONS (7)
  - Feeling abnormal [Unknown]
  - Injection site urticaria [Not Recovered/Not Resolved]
  - Limb discomfort [Not Recovered/Not Resolved]
  - Injection site swelling [Not Recovered/Not Resolved]
  - Pain in extremity [Not Recovered/Not Resolved]
  - Injection site induration [Not Recovered/Not Resolved]
  - Migraine [Unknown]

NARRATIVE: CASE EVENT DATE: 20210505
